FAERS Safety Report 25670806 (Version 1)
Quarter: 2025Q3

REPORT INFORMATION
  Report Type: Spontaneous
  Country: CN (occurrence: CN)
  Receive Date: 20250812
  Receipt Date: 20250812
  Transmission Date: 20251021
  Serious: Yes (Other)
  Sender: PFIZER
  Company Number: CN-PFIZER INC-PV202500096569

PATIENT
  Age: 32 Year
  Sex: Female
  Weight: 61.5 kg

DRUGS (2)
  1. HEMABATE [Suspect]
     Active Substance: CARBOPROST TROMETHAMINE
     Indication: Uterine hypotonus
     Dosage: 1 ML, 1X/DAY
     Route: 030
     Dates: start: 20250722, end: 20250722
  2. OXYTOCIN [Concomitant]
     Active Substance: OXYTOCIN
     Indication: Uterine hypotonus
     Dosage: 2 ML, 1X/DAY
     Route: 030
     Dates: start: 20250722, end: 20250722

REACTIONS (3)
  - Abdominal pain [Recovering/Resolving]
  - Vomiting [Recovering/Resolving]
  - Abdominal pain upper [Recovering/Resolving]

NARRATIVE: CASE EVENT DATE: 20250722
